FAERS Safety Report 10153795 (Version 1)
Quarter: 2014Q2

REPORT INFORMATION
  Report Type: Spontaneous
  Country: US (occurrence: US)
  Receive Date: 20140506
  Receipt Date: 20140506
  Transmission Date: 20141212
  Serious: No
  Sender: FDA-Public Use
  Company Number: US-009507513-1405USA002617

PATIENT
  Sex: Female

DRUGS (1)
  1. CLARITIN [Suspect]
     Indication: NAUSEA
     Dosage: TOOK THE CLARITIN AT 8:00 P.M, LAST NIGHT AND THIS MORNING AT 4:00 A.M AND AGAIN JUST NOW AT 8:45 AM
     Route: 048

REACTIONS (2)
  - Off label use [Unknown]
  - Overdose [Unknown]
